FAERS Safety Report 7563101-5 (Version None)
Quarter: 2011Q2

REPORT INFORMATION
  Report Type: 
  Country: None (occurrence: None)
  Receive Date: 20110622
  Receipt Date: 20110614
  Transmission Date: 20111010
  Serious: Yes (Hospitalization, Other)
  Sender: FDA-Public Use
  Company Number: US-AMGEN-USASP2011030481

PATIENT
  Age: 52 Year
  Sex: Female

DRUGS (1)
  1. ENBREL [Suspect]
     Indication: ANKYLOSING SPONDYLITIS
     Dosage: 50 MG, QWK
     Dates: start: 20100630

REACTIONS (5)
  - MUSCULOSKELETAL CHEST PAIN [None]
  - SPINAL COLUMN STENOSIS [None]
  - PARAESTHESIA [None]
  - MUSCLE SPASMS [None]
  - ANKYLOSING SPONDYLITIS [None]
